FAERS Safety Report 11303431 (Version 1)
Quarter: 2015Q3

REPORT INFORMATION
  Report Type: Spontaneous
  Country: US (occurrence: US)
  Receive Date: 20150723
  Receipt Date: 20150723
  Transmission Date: 20151125
  Serious: No
  Sender: FDA-Public Use
  Company Number: US-JNJFOC-20150417321

PATIENT
  Age: 74 Year
  Sex: Female

DRUGS (4)
  1. ZYRTEC [Suspect]
     Active Substance: CETIRIZINE HYDROCHLORIDE
     Indication: SEASONAL ALLERGY
     Dosage: 12 HOURS APART
     Route: 048
     Dates: start: 20150420
  2. ALEVE [Concomitant]
     Active Substance: NAPROXEN SODIUM
     Indication: MALAISE
     Route: 065
  3. ZYRTEC [Suspect]
     Active Substance: CETIRIZINE HYDROCHLORIDE
     Route: 048
  4. MUCINEX [Concomitant]
     Active Substance: GUAIFENESIN
     Indication: MALAISE
     Route: 065

REACTIONS (1)
  - Inappropriate schedule of drug administration [Unknown]
